FAERS Safety Report 5775451-3 (Version None)
Quarter: 2008Q2

REPORT INFORMATION
  Report Type: 
  Country: None (occurrence: None)
  Receive Date: 20080617
  Receipt Date: 20080605
  Transmission Date: 20081010
  Serious: Yes (Other)
  Sender: FDA-Public Use
  Company Number: PHNU2008DE02013

PATIENT
  Age: 14 Year
  Sex: Female

DRUGS (1)
  1. RITALIN [Suspect]
     Dosage: 20 MG7DAY
     Route: 048
     Dates: start: 20001005

REACTIONS (1)
  - SUDDEN HEARING LOSS [None]
